FAERS Safety Report 9293032 (Version 1)
Quarter: 2013Q1

REPORT INFORMATION
  Report Type: Spontaneous
  Country: US (occurrence: None)
  Receive Date: 20121213
  Receipt Date: 20121213
  Transmission Date: 20140127
  Serious: Yes (Hospitalization)
  Sender: FDA-Public Use
  Company Number: FK201201351

PATIENT
  Age: 58 Year
  Sex: Female

DRUGS (3)
  1. FLUDARABINE [Suspect]
     Indication: CHRONIC LYMPHOCYTIC LEUKAEMIA
     Dosage: 25 MG/M2, DAYS 1-3 EVERY 28
     Dates: start: 20120126, end: 20120323
  2. CYCLOPHOSPHAMIDE [Suspect]
     Dosage: 250 MG/M2, DAYS 1-3 EVERY 28 DAYS
     Dates: start: 20120126, end: 20120323
  3. RITUXIMAB [Suspect]
     Indication: CHRONIC LYMPHOCYTIC LEUKAEMIA
     Dosage: 500 MG/M2, EVERY 28 DAYS.
     Dates: start: 20120126, end: 20120323

REACTIONS (2)
  - Diarrhoea [None]
  - Dehydration [None]
